FAERS Safety Report 9907738 (Version 3)
Quarter: 2014Q1

REPORT INFORMATION
  Report Type: Spontaneous
  Country: US (occurrence: US)
  Receive Date: 20140219
  Receipt Date: 20140325
  Transmission Date: 20141002
  Serious: Yes (Hospitalization)
  Sender: FDA-Public Use
  Company Number: US-BIOGENIDEC-2014BI014617

PATIENT
  Age: 55 Year
  Sex: Male

DRUGS (2)
  1. TECFIDERA [Suspect]
     Indication: MULTIPLE SCLEROSIS
     Route: 048
     Dates: start: 20140117
  2. TECFIDERA [Suspect]
     Indication: MULTIPLE SCLEROSIS
     Route: 048
     Dates: start: 201401

REACTIONS (4)
  - Migraine [Recovered/Resolved]
  - Headache [Recovered/Resolved]
  - Flushing [Not Recovered/Not Resolved]
  - Gastric disorder [Not Recovered/Not Resolved]
